FAERS Safety Report 4698318-0 (Version None)
Quarter: 2005Q2

REPORT INFORMATION
  Report Type: 
  Country: None (occurrence: None)
  Receive Date: 20050623
  Receipt Date: 20050401
  Transmission Date: 20051028
  Serious: Yes (Death)
  Sender: FDA-Public Use
  Company Number: JP-ROCHE-401198

PATIENT
  Age: 87 Year
  Sex: Female

DRUGS (3)
  1. TAMIFLU [Suspect]
     Route: 050
     Dates: start: 20050323, end: 20050327
  2. CALONAL [Concomitant]
     Indication: DRUG USE FOR UNKNOWN INDICATION
     Route: 050
     Dates: start: 20050323, end: 20050327
  3. ALSAZULENE [Concomitant]
     Indication: DRUG USE FOR UNKNOWN INDICATION
     Route: 050
     Dates: start: 20050323, end: 20050327

REACTIONS (1)
  - DISSEMINATED INTRAVASCULAR COAGULATION [None]
